FAERS Safety Report 5510756-2 (Version None)
Quarter: 2007Q4

REPORT INFORMATION
  Report Type: 
  Country: None (occurrence: None)
  Receive Date: 20071108
  Receipt Date: 20071102
  Transmission Date: 20080405
  Serious: Yes (Other)
  Sender: FDA-Public Use
  Company Number: B0491444A

PATIENT
  Age: 12 Year
  Sex: Male
  Weight: 37 kg

DRUGS (5)
  1. RELENZA [Suspect]
     Indication: INFLUENZA
     Route: 055
     Dates: start: 20071005, end: 20071009
  2. ALLELOCK [Concomitant]
     Indication: RHINITIS
     Route: 048
     Dates: start: 20071005, end: 20071009
  3. HISPORAN [Concomitant]
     Indication: RHINITIS
     Route: 048
     Dates: start: 20071005, end: 20071009
  4. MEPTIN [Concomitant]
     Indication: BRONCHITIS
     Route: 048
     Dates: start: 20071005, end: 20071009
  5. METHISTA [Concomitant]
     Indication: BRONCHITIS
     Route: 048
     Dates: start: 20071005, end: 20071009

REACTIONS (3)
  - ABNORMAL BEHAVIOUR [None]
  - HALLUCINATION [None]
  - HALLUCINATION, AUDITORY [None]
